FAERS Safety Report 6468975-7 (Version None)
Quarter: 2009Q4

REPORT INFORMATION
  Report Type: 
  Country: None (occurrence: None)
  Receive Date: 20091203
  Receipt Date: 20071031
  Transmission Date: 20100525
  Serious: Yes (Life-Threatening, Hospitalization, Other)
  Sender: FDA-Public Use
  Company Number: GB-LLY01-GBS050818233

PATIENT
  Age: 43 Year
  Sex: Male

DRUGS (7)
  1. FLUOXETINE [Suspect]
     Dosage: 600 MG, UNKNOWN
     Route: 048
  2. AMLODIPINE [Concomitant]
     Dosage: 560 MG, UNKNOWN
     Route: 048
  3. FOLIC ACID [Concomitant]
     Dosage: 30 D/F, UNKNOWN
     Route: 048
  4. ACETYLSALICYLIC ACID [Concomitant]
     Dosage: 7.5 G, UNKNOWN
     Route: 048
  5. PARACETAMOL [Concomitant]
     Dosage: 16 G, UNKNOWN
     Route: 048
  6. CITALOPRAM HYDROBROMIDE [Concomitant]
     Dosage: 280 MG, UNKNOWN
     Route: 048
  7. PERINDOPRIL [Concomitant]
     Dosage: 120 MG, UNKNOWN
     Route: 048

REACTIONS (6)
  - HYPOKALAEMIA [None]
  - HYPOTENSION [None]
  - INTENTIONAL OVERDOSE [None]
  - METABOLIC ACIDOSIS [None]
  - RENAL FAILURE [None]
  - URINE OUTPUT DECREASED [None]
